FAERS Safety Report 4652752-3 (Version None)
Quarter: 2005Q2

REPORT INFORMATION
  Report Type: 
  Country: None (occurrence: None)
  Receive Date: 20050503
  Receipt Date: 20050309
  Transmission Date: 20051028
  Serious: Yes (Other)
  Sender: FDA-Public Use
  Company Number: 2005S1001106

PATIENT
  Age: 83 Year
  Sex: Male
  Weight: 72.5755 kg

DRUGS (15)
  1. EXTENDED PHENYTOIN SODIUM [Suspect]
     Dosage: 200 MG; BID; PR
     Dates: start: 20050124
  2. NYSTATIN [Concomitant]
  3. METOPROLOL SUCCINATE [Concomitant]
  4. LAMOTRIGINE [Concomitant]
  5. QUETIAPINE FUMARATE [Concomitant]
  6. QUETIAPINE FUMARATE [Concomitant]
  7. LOSARTAN POTASSIUM [Concomitant]
  8. NITROGLYCERIN [Concomitant]
  9. GLYBURIDE [Concomitant]
  10. CILOSTAZOL [Concomitant]
  11. PARACETAMOL [Concomitant]
  12. PROCHLORPERAZINE [Concomitant]
  13. HYOSCYAMINE [Concomitant]
  14. MORPHINE SULFATE [Concomitant]
  15. HALOPERIDOL [Concomitant]

REACTIONS (1)
  - CONVULSION [None]
